FAERS Safety Report 6262192-1 (Version None)
Quarter: 2009Q3

REPORT INFORMATION
  Report Type: 
  Country: None (occurrence: None)
  Receive Date: 20090709
  Receipt Date: 20090701
  Transmission Date: 20100115
  Serious: Yes (Hospitalization)
  Sender: FDA-Public Use
  Company Number: FR-MERCK-0905FRA00073

PATIENT
  Age: 87 Year
  Sex: Female

DRUGS (8)
  1. HYZAAR [Suspect]
     Indication: HYPERTENSION
     Route: 048
     Dates: end: 20090101
  2. TRIMETAZIDINE HYDROCHLORIDE [Suspect]
     Route: 048
     Dates: end: 20090101
  3. CLOPIDOGREL BISULFATE [Concomitant]
     Route: 065
  4. ATORVASTATIN CALCIUM [Concomitant]
     Route: 065
  5. CALCIUM CARBONATE [Concomitant]
     Route: 065
  6. FOLIC ACID [Concomitant]
     Route: 065
  7. DONEPEZIL HYDROCHLORIDE [Suspect]
     Route: 048
  8. POLYETHYLENE GLYCOL 4000 [Concomitant]
     Route: 065

REACTIONS (3)
  - FACIAL BONES FRACTURE [None]
  - FALL [None]
  - ORTHOSTATIC HYPOTENSION [None]
